FAERS Safety Report 7268749-3 (Version None)
Quarter: 2011Q1

REPORT INFORMATION
  Report Type: 
  Country: None (occurrence: None)
  Receive Date: 20110201
  Receipt Date: 20100908
  Transmission Date: 20110831
  Serious: Yes (Death, Hospitalization)
  Sender: FDA-Public Use
  Company Number: DK-NOVOPROD-308643

PATIENT
  Age: 71 Year
  Sex: Female

DRUGS (2)
  1. VICTOZA [Suspect]
     Indication: TYPE 2 DIABETES MELLITUS
     Dates: start: 20091126, end: 20100301
  2. ENALAPRIL MALEATE [Concomitant]
     Indication: HYPERTENSION

REACTIONS (3)
  - GASTROENTERITIS [None]
  - CARDIAC ARREST [None]
  - SEPTIC SHOCK [None]
